FAERS Safety Report 11526455 (Version 1)
Quarter: 2015Q3

REPORT INFORMATION
  Report Type: Spontaneous
  Country: US (occurrence: US)
  Receive Date: 20150903
  Receipt Date: 20150903
  Transmission Date: 20151125
  Serious: Yes (Other)
  Sender: FDA-Public Use
  Company Number: US-ELI_LILLY_AND_COMPANY-US201309009804

PATIENT
  Sex: Female
  Weight: 79.37 kg

DRUGS (4)
  1. METFORMIN [Concomitant]
     Active Substance: METFORMIN HYDROCHLORIDE
     Indication: DIABETES MELLITUS
     Dosage: UNK, UNKNOWN (FOR 15 YEARS)
     Route: 065
  2. INSULIN [Concomitant]
     Active Substance: INSULIN NOS
     Dosage: 40 U, UNKNOWN
     Route: 065
  3. LYRICA [Concomitant]
     Active Substance: PREGABALIN
     Indication: DIABETIC NEUROPATHY
     Dosage: UNK, QD
     Route: 065
  4. CYMBALTA [Suspect]
     Active Substance: DULOXETINE HYDROCHLORIDE
     Indication: DIABETIC NEUROPATHY
     Dosage: UNK, UNKNOWN (STARTED SEVERAL YEARS AGO, TOOK FOR THREE DAYS)
     Route: 065

REACTIONS (2)
  - Vision blurred [Unknown]
  - Intentional product misuse [Unknown]
